FAERS Safety Report 19361410 (Version 1)
Quarter: 2021Q2

REPORT INFORMATION
  Report Type: Other
  Country: US (occurrence: US)
  Receive Date: 20210601
  Receipt Date: 20210601
  Transmission Date: 20210717
  Serious: Yes (Other)
  Sender: FDA-Public Use
  Company Number: US-ROCHE-2835407

PATIENT
  Age: 65 Year
  Sex: Female

DRUGS (3)
  1. BEVACIZUMAB. [Suspect]
     Active Substance: BEVACIZUMAB
     Indication: DIABETIC RETINOPATHY
     Dosage: 1.25 MG/0.05 CC
     Route: 050
  2. ACETYLSALICYLIC ACID [Concomitant]
     Active Substance: ASPIRIN
  3. PREDNISONE. [Concomitant]
     Active Substance: PREDNISONE

REACTIONS (11)
  - Retinal haemorrhage [Unknown]
  - Anterior chamber cell [Unknown]
  - Arterial occlusive disease [Unknown]
  - Venous occlusion [Unknown]
  - Retinal vascular occlusion [Unknown]
  - Retinal ischaemia [Unknown]
  - Vitreous haemorrhage [Unknown]
  - Optic disc haemorrhage [Unknown]
  - Anterior chamber flare [Unknown]
  - Papilloedema [Unknown]
  - Macular oedema [Unknown]
